FAERS Safety Report 5118274-0 (Version None)
Quarter: 2006Q4

REPORT INFORMATION
  Report Type: 
  Country: None (occurrence: None)
  Receive Date: 20061002
  Receipt Date: 20060802
  Transmission Date: 20070319
  Serious: No
  Sender: FDA-Public Use
  Company Number: US-BRISTOL-MYERS SQUIBB COMPANY-13463468

PATIENT
  Sex: Female

DRUGS (1)
  1. ORENCIA [Suspect]
     Indication: RHEUMATOID ARTHRITIS

REACTIONS (4)
  - CHEST PAIN [None]
  - HEADACHE [None]
  - HYPERHIDROSIS [None]
  - PAIN IN EXTREMITY [None]
